FAERS Safety Report 7792958-8 (Version None)
Quarter: 2011Q4

REPORT INFORMATION
  Report Type: 
  Country: None (occurrence: None)
  Receive Date: 20111003
  Receipt Date: 20110926
  Transmission Date: 20120403
  Serious: Yes (Death, Hospitalization)
  Sender: FDA-Public Use
  Company Number: PHHY2011CN85238

PATIENT
  Age: 31 Year
  Sex: Male
  Weight: 58 kg

DRUGS (7)
  1. CYTARABINE [Concomitant]
     Dosage: UNK
     Route: 042
     Dates: start: 20110902, end: 20110905
  2. TASIGNA [Suspect]
     Indication: CHRONIC MYELOID LEUKAEMIA
     Dosage: 800 MG, DAILY
     Route: 048
     Dates: start: 20110814, end: 20110912
  3. CYTARABINE [Concomitant]
  4. DEXAMETHASONE [Concomitant]
     Dosage: 15 MG, DAILY
     Route: 042
     Dates: start: 20110811, end: 20110813
  5. MITOXANTRONE [Concomitant]
     Dosage: 12 MG/H, DAILY
     Dates: start: 20110811, end: 20110813
  6. VINCRISTINE [Concomitant]
     Dosage: 2 MG, DAILY
     Route: 042
     Dates: start: 20110811, end: 20110813
  7. HYDROXYUREA [Concomitant]

REACTIONS (10)
  - METASTASES TO CENTRAL NERVOUS SYSTEM [None]
  - DYSPNOEA [None]
  - DRUG INEFFECTIVE [None]
  - LOSS OF CONSCIOUSNESS [None]
  - CEREBRAL HAEMORRHAGE [None]
  - HYPOAESTHESIA [None]
  - HEMIPLEGIA [None]
  - CHRONIC MYELOID LEUKAEMIA [None]
  - DIZZINESS [None]
  - VISION BLURRED [None]
